FAERS Safety Report 17501994 (Version 2)
Quarter: 2020Q1

REPORT INFORMATION
  Report Type: Spontaneous
  Country: US (occurrence: US)
  Receive Date: 20200305
  Receipt Date: 20200306
  Transmission Date: 20200409
  Serious: No
  Sender: FDA-Public Use
  Company Number: US-TEVA-2020-US-1192113

PATIENT
  Age: 69 Year
  Sex: Female

DRUGS (1)
  1. BUPRENORPHINE TEVA [Suspect]
     Active Substance: BUPRENORPHINE
     Indication: PAIN
     Dosage: SARTING AT 5 MCG/HR AND WAS INCREASED TO 10 MCG/HR
     Route: 062
     Dates: start: 201910

REACTIONS (3)
  - Application site erythema [Not Recovered/Not Resolved]
  - Administration site discharge [Not Recovered/Not Resolved]
  - Application site pruritus [Not Recovered/Not Resolved]

NARRATIVE: CASE EVENT DATE: 20200221
